FAERS Safety Report 9320454 (Version 1)
Quarter: 2013Q2

REPORT INFORMATION
  Report Type: Spontaneous
  Country: IT (occurrence: IT)
  Receive Date: 20130530
  Receipt Date: 20130530
  Transmission Date: 20140414
  Serious: Yes (Hospitalization)
  Sender: FDA-Public Use
  Company Number: IT-PFIZER INC-2013164053

PATIENT
  Age: 50 Year
  Sex: Male

DRUGS (1)
  1. TORVAST [Suspect]
     Indication: HYPERCHOLESTEROLAEMIA
     Dosage: 80 MG, 1X/DAY
     Route: 048
     Dates: start: 20130325, end: 20130405

REACTIONS (3)
  - Myalgia [Unknown]
  - Abdominal pain upper [Unknown]
  - Paraesthesia [Unknown]
